FAERS Safety Report 5541602-9 (Version None)
Quarter: 2007Q4

REPORT INFORMATION
  Report Type: 
  Country: None (occurrence: None)
  Receive Date: 20071205
  Receipt Date: 20071205
  Transmission Date: 20080405
  Serious: Yes (Hospitalization)
  Sender: FDA-Public Use
  Company Number: None

PATIENT
  Sex: Female
  Weight: 67.3 kg

DRUGS (3)
  1. FLUOROURACIL [Suspect]
     Dosage: 7392 MG
  2. BEVACIZUMAB (RHUMAB VEGF) [Suspect]
     Dosage: 664 MG
  3. LEUCOVORIN CALCIUM [Suspect]
     Dosage: 1408 MG

REACTIONS (4)
  - HEADACHE [None]
  - HYPERTENSION [None]
  - TREATMENT NONCOMPLIANCE [None]
  - VOMITING [None]
